FAERS Safety Report 7960162-6 (Version None)
Quarter: 2011Q4

REPORT INFORMATION
  Report Type: 
  Country: None (occurrence: None)
  Receive Date: 20111206
  Receipt Date: 20111130
  Transmission Date: 20120403
  Serious: Yes (Hospitalization)
  Sender: FDA-Public Use
  Company Number: PHHY2011FR105665

PATIENT
  Sex: Female

DRUGS (7)
  1. LITHIUM CARBONATE [Suspect]
     Dosage: 375 MG, BID
     Route: 048
  2. ALPRAZOLAM [Concomitant]
  3. FUNGIZONE [Concomitant]
  4. LITHIUM CARBONATE [Suspect]
     Dosage: 250 MG, BID
     Route: 048
  5. LEVOTHYROXINE SODIUM [Concomitant]
  6. HALDOL [Concomitant]
  7. VOLTAREN [Suspect]
     Dosage: 75 MG, FOR 1 WEEK FROM TIME TO TIME
     Route: 048
     Dates: start: 20110601, end: 20110801

REACTIONS (4)
  - ANTIPSYCHOTIC DRUG LEVEL INCREASED [None]
  - BALANCE DISORDER [None]
  - WEIGHT DECREASED [None]
  - DECREASED APPETITE [None]
